FAERS Safety Report 4719185-2 (Version None)
Quarter: 2005Q3

REPORT INFORMATION
  Report Type: 
  Country: None (occurrence: None)
  Receive Date: 20050720
  Receipt Date: 20050630
  Transmission Date: 20060218
  Serious: Yes (Other)
  Sender: FDA-Public Use
  Company Number: GBS050717800

PATIENT
  Age: 25 Year
  Sex: Female
  Weight: 40 kg

DRUGS (1)
  1. XIGRIS [Suspect]
     Indication: SEPTIC SHOCK
     Dosage: 24 UG/KG/HR
     Dates: start: 20050627, end: 20050628

REACTIONS (8)
  - ACTIVATED PARTIAL THROMBOPLASTIN TIME SHORTENED [None]
  - HAEMORRHAGE [None]
  - HAEMORRHAGE SUBCUTANEOUS [None]
  - HAEMOTHORAX [None]
  - INTERNATIONAL NORMALISED RATIO INCREASED [None]
  - PLEURAL EFFUSION [None]
  - PNEUMOTHORAX [None]
  - PURPURA FULMINANS [None]
